FAERS Safety Report 7571614-5 (Version None)
Quarter: 2011Q2

REPORT INFORMATION
  Report Type: 
  Country: None (occurrence: None)
  Receive Date: 20110624
  Receipt Date: 20110620
  Transmission Date: 20111010
  Serious: Yes (Death, Life-Threatening, Disabling, Other)
  Sender: FDA-Public Use
  Company Number: JP-SANOFI-AVENTIS-2011SA039183

PATIENT
  Age: 60 Year
  Sex: Male

DRUGS (6)
  1. VOLTAREN [Concomitant]
     Dates: start: 20101106
  2. OXALIPLATIN [Suspect]
     Indication: LARGE INTESTINE CARCINOMA
     Route: 041
     Dates: start: 20100707, end: 20101027
  3. AVASTIN [Suspect]
     Indication: LARGE INTESTINE CARCINOMA
     Route: 041
     Dates: start: 20100707, end: 20110331
  4. XELODA [Suspect]
     Indication: LARGE INTESTINE CARCINOMA
     Route: 048
     Dates: start: 20100707, end: 20110302
  5. IRINOTECAN HCL [Concomitant]
     Dates: start: 20110316
  6. TS-1 [Concomitant]
     Dates: start: 20110316

REACTIONS (6)
  - PERITONITIS [None]
  - POSTOPERATIVE WOUND COMPLICATION [None]
  - MULTI-ORGAN FAILURE [None]
  - ABDOMINAL PAIN [None]
  - NEUTROPHIL COUNT DECREASED [None]
  - PYREXIA [None]
